FAERS Safety Report 11170504 (Version 1)
Quarter: 2015Q2

REPORT INFORMATION
  Report Type: Spontaneous
  Country: BE (occurrence: None)
  Receive Date: 20150604
  Receipt Date: 20150604
  Transmission Date: 20150821
  Serious: Yes (Hospitalization, Other)
  Sender: FDA-Public Use
  Company Number: B0970707A

PATIENT
  Age: 44 Year
  Sex: Male
  Weight: 71.6 kg

DRUGS (9)
  1. CLARITHROMYCINE [Concomitant]
     Active Substance: CLARITHROMYCIN
  2. DAFALGAN [Concomitant]
     Active Substance: ACETAMINOPHEN
  3. MARAVIROC [Suspect]
     Active Substance: MARAVIROC
     Indication: HIV INFECTION
     Route: 048
     Dates: start: 20110531
  4. TRAMADOL [Concomitant]
     Active Substance: TRAMADOL
  5. ETRAVIRINE [Concomitant]
     Active Substance: ETRAVIRINE
  6. RALTEGRAVIR [Concomitant]
     Active Substance: RALTEGRAVIR
  7. MOVICOL [Concomitant]
     Active Substance: POLYETHYLENE GLYCOL 3350\POTASSIUM CHLORIDE\SODIUM BICARBONATE\SODIUM CHLORIDE
  8. LAMIVUDINE-HIV [Concomitant]
     Active Substance: LAMIVUDINE
  9. PANTOPRAZOLE [Concomitant]
     Active Substance: PANTOPRAZOLE SODIUM

REACTIONS (2)
  - Abdominal pain [None]
  - Constipation [None]

NARRATIVE: CASE EVENT DATE: 20130903
